FAERS Safety Report 8076434-3 (Version None)
Quarter: 2012Q1

REPORT INFORMATION
  Report Type: 
  Country: None (occurrence: None)
  Receive Date: 20120127
  Receipt Date: 20120126
  Transmission Date: 20120608
  Serious: Yes (Other)
  Sender: FDA-Public Use
  Company Number: US-PFIZER INC-2012015743

PATIENT
  Sex: Male
  Weight: 112.47 kg

DRUGS (4)
  1. LIPITOR [Suspect]
     Indication: BLOOD CHOLESTEROL INCREASED
     Dosage: 80 MG, 1X/ DAY
     Route: 048
  2. LISINOPRIL [Concomitant]
     Indication: HYPERTENSION
     Dosage: UNK
  3. AVANDIA [Suspect]
     Dosage: UNK
  4. DYAZIDE [Concomitant]
     Indication: HYPERTENSION
     Dosage: UNK

REACTIONS (5)
  - TYPE 2 DIABETES MELLITUS [None]
  - RASH [None]
  - GLYCOSYLATED HAEMOGLOBIN INCREASED [None]
  - CEREBROVASCULAR ACCIDENT [None]
  - WEIGHT INCREASED [None]
